FAERS Safety Report 9709250 (Version 3)
Quarter: 2013Q4

REPORT INFORMATION
  Report Type: Spontaneous
  Country: US (occurrence: US)
  Receive Date: 20131125
  Receipt Date: 20131218
  Transmission Date: 20140711
  Serious: Yes (Other)
  Sender: FDA-Public Use
  Company Number: US-THROMBOGENICS NV-JET-2013-293

PATIENT
  Age: 76 Year
  Sex: Female

DRUGS (6)
  1. JETREA [Suspect]
     Indication: VITREOUS ADHESIONS
     Dosage: 0.1 ML, ONE TIME DOSE
     Route: 031
     Dates: start: 20130912, end: 20130912
  2. ZIOPTAN [Concomitant]
     Indication: PRODUCT USED FOR UNKNOWN INDICATION
     Dosage: 1 GTT, QHS
     Route: 061
  3. COSOPT [Concomitant]
     Indication: PRODUCT USED FOR UNKNOWN INDICATION
     Dosage: 1 GTT, BID
     Route: 061
  4. BRIMONIDINE [Concomitant]
     Indication: PRODUCT USED FOR UNKNOWN INDICATION
     Dosage: 1 GTT, TID
     Route: 061
  5. LOTEMAX [Concomitant]
     Indication: PRODUCT USED FOR UNKNOWN INDICATION
     Dosage: 1 GTT, QID
     Route: 061
  6. ARTIFICIAL TEARS                   /00445101/ [Concomitant]
     Indication: PRODUCT USED FOR UNKNOWN INDICATION
     Dosage: UNK, PRN

REACTIONS (14)
  - Eye inflammation [Not Recovered/Not Resolved]
  - Cystoid macular oedema [Unknown]
  - Retinal detachment [Unknown]
  - Tunnel vision [Unknown]
  - Eye pain [Unknown]
  - Visual acuity reduced [Unknown]
  - Photophobia [Unknown]
  - Metamorphopsia [Unknown]
  - Visual field defect [Unknown]
  - Ocular hyperaemia [Unknown]
  - Vision blurred [Unknown]
  - Eyelid ptosis [Unknown]
  - Headache [Unknown]
  - Drug ineffective [Unknown]
